FAERS Safety Report 8510982 (Version 7)
Quarter: 2014Q2

REPORT INFORMATION
  Report Type: Report from Study
  Country: KR (occurrence: KR)
  Receive Date: 20120413
  Receipt Date: 20140403
  Transmission Date: 20141212
  Serious: Yes (Life-Threatening, Hospitalization, Other)
  Sender: FDA-Public Use
  Company Number: KR-MPIJNJ-2012-02502

PATIENT
  Age: 64 Year
  Sex: Male
  Weight: 58.95 kg

DRUGS (3)
  1. VELCADE [Suspect]
     Indication: PLASMA CELL MYELOMA
     Dosage: 1.3 MG/M2, UNK
     Route: 042
     Dates: start: 20120127, end: 20120725
  2. MELPHALAN [Suspect]
     Indication: PLASMA CELL MYELOMA
     Dosage: 6.75 MG/M2, UNK
     Route: 048
     Dates: start: 20120127, end: 20120721
  3. PREDNISOLONE [Suspect]
     Indication: PLASMA CELL MYELOMA
     Dosage: 45 MG/M2, UNK
     Route: 048
     Dates: start: 20120127, end: 20120721

REACTIONS (5)
  - Neutropenia [Recovered/Resolved]
  - Thrombocytopenia [Recovered/Resolved]
  - Septic shock [Recovered/Resolved]
  - Pneumonia [Recovered/Resolved]
  - Benign prostatic hyperplasia [Not Recovered/Not Resolved]
